FAERS Safety Report 17142579 (Version 4)
Quarter: 2020Q1

REPORT INFORMATION
  Report Type: Spontaneous
  Country: US (occurrence: US)
  Receive Date: 20191211
  Receipt Date: 20200302
  Transmission Date: 20200409
  Serious: Yes (Other)
  Sender: FDA-Public Use
  Company Number: US-ACTELION-A-US2019-199375

PATIENT
  Sex: Female
  Weight: 72.56 kg

DRUGS (4)
  1. OXYCODONE [Suspect]
     Active Substance: OXYCODONE
     Indication: PAIN
     Route: 065
  2. AMBRISENTAN [Concomitant]
     Active Substance: AMBRISENTAN
  3. VENTAVIS [Suspect]
     Active Substance: ILOPROST
     Indication: PULMONARY ARTERIAL HYPERTENSION
     Dosage: 5 MCG 6-9 TIMES PER DAY
     Route: 055
  4. REVATIO [Concomitant]
     Active Substance: SILDENAFIL CITRATE

REACTIONS (10)
  - Nephrolithiasis [Unknown]
  - Headache [Unknown]
  - Bladder operation [Unknown]
  - Renal cyst excision [Unknown]
  - Pollakiuria [Unknown]
  - Renal cyst [Unknown]
  - Vomiting [Unknown]
  - Back injury [Unknown]
  - Pain [Unknown]
  - Bladder cyst [Unknown]

NARRATIVE: CASE EVENT DATE: 2018
